FAERS Safety Report 7740643-0 (Version None)
Quarter: 2011Q3

REPORT INFORMATION
  Report Type: 
  Country: None (occurrence: None)
  Receive Date: 20110909
  Receipt Date: 20110902
  Transmission Date: 20111222
  Serious: Yes (Other)
  Sender: FDA-Public Use
  Company Number: FR-MERCK-1109FRA00022

PATIENT
  Age: 65 Year
  Sex: Female

DRUGS (7)
  1. JANUMET [Suspect]
     Indication: TYPE 2 DIABETES MELLITUS
     Route: 048
     Dates: start: 20110606, end: 20110822
  2. GLICLAZIDE [Concomitant]
     Route: 065
  3. ACARBOSE [Concomitant]
     Route: 065
  4. ASPIRIN LYSINE [Concomitant]
     Route: 065
  5. ATENOLOL [Concomitant]
     Route: 065
  6. CANDESARTAN CILEXETIL AND HYDROCHLOROTHIAZIDE [Concomitant]
     Route: 065
  7. SIMVASTATIN [Concomitant]
     Route: 065

REACTIONS (3)
  - PERICARDITIS [None]
  - BRONCHIAL WALL THICKENING [None]
  - C-REACTIVE PROTEIN INCREASED [None]
